FAERS Safety Report 20419451 (Version 1)
Quarter: 2022Q1

REPORT INFORMATION
  Report Type: Other
  Country: US (occurrence: None)
  Receive Date: 20220203
  Receipt Date: 20220203
  Transmission Date: 20220423
  Serious: No
  Sender: FDA-Public Use
  Company Number: US-ROCHE-3008365

PATIENT
  Sex: Male

DRUGS (1)
  1. OCREVUS [Suspect]
     Active Substance: OCRELIZUMAB
     Indication: Relapsing multiple sclerosis
     Dosage: 18/AUG/2020, 25/FEB/2021, 27/AUG/2021.
     Route: 065
     Dates: start: 20200804

REACTIONS (1)
  - COVID-19 [Recovered/Resolved]
